FAERS Safety Report 7599298-0 (Version None)
Quarter: 2011Q3

REPORT INFORMATION
  Report Type: 
  Country: None (occurrence: None)
  Receive Date: 20110711
  Receipt Date: 20110607
  Transmission Date: 20111222
  Serious: No
  Sender: FDA-Public Use
  Company Number: US-BAYER-2011-050029

PATIENT
  Sex: Female

DRUGS (3)
  1. FISH OIL [Concomitant]
  2. ALEVE (CAPLET) [Suspect]
     Route: 048
  3. GLUCOSAMINE [Concomitant]

REACTIONS (1)
  - NO ADVERSE EVENT [None]
